FAERS Safety Report 6656585-8 (Version None)
Quarter: 2010Q1

REPORT INFORMATION
  Report Type: 
  Country: None (occurrence: None)
  Receive Date: 20100329
  Receipt Date: 20100319
  Transmission Date: 20100710
  Serious: Yes (Life-Threatening)
  Sender: FDA-Public Use
  Company Number: FR-ABBOTT-10P-056-0633490-00

PATIENT
  Age: 53 Year
  Sex: Male

DRUGS (4)
  1. DEPAKENE [Suspect]
     Indication: CONVULSION
     Route: 048
     Dates: start: 20080610, end: 20080713
  2. GARDENAL [Suspect]
     Indication: CONVULSION
     Route: 048
     Dates: start: 20080616, end: 20080624
  3. IXPRIM [Concomitant]
     Indication: DRUG USE FOR UNKNOWN INDICATION
  4. PARACETAMOL [Concomitant]
     Indication: DRUG USE FOR UNKNOWN INDICATION

REACTIONS (7)
  - ALANINE AMINOTRANSFERASE INCREASED [None]
  - DRUG RASH WITH EOSINOPHILIA AND SYSTEMIC SYMPTOMS [None]
  - EOSINOPHILIA [None]
  - GAMMA-GLUTAMYLTRANSFERASE INCREASED [None]
  - LIP EROSION [None]
  - PENILE ULCERATION [None]
  - PURPURA [None]
